FAERS Safety Report 12244499 (Version 2)
Quarter: 2016Q2

REPORT INFORMATION
  Report Type: Spontaneous
  Country: US (occurrence: US)
  Receive Date: 20160407
  Receipt Date: 20160425
  Transmission Date: 20160815
  Serious: Yes (Other)
  Sender: FDA-Public Use
  Company Number: US-AUROBINDO-AUR-APL-2016-04306

PATIENT

DRUGS (2)
  1. PREDNISONE. [Suspect]
     Active Substance: PREDNISONE
     Indication: ACUTE DISSEMINATED ENCEPHALOMYELITIS
     Route: 048
  2. METHYLPREDNISOLONE. [Suspect]
     Active Substance: METHYLPREDNISOLONE
     Indication: ACUTE DISSEMINATED ENCEPHALOMYELITIS
     Dosage: UNK MG, UNK
     Route: 042

REACTIONS (3)
  - Ataxia [Recovered/Resolved]
  - Tremor [Recovered/Resolved]
  - Cushingoid [Recovered/Resolved]
